FAERS Safety Report 9643736 (Version 1)
Quarter: 2013Q4

REPORT INFORMATION
  Report Type: Spontaneous
  Country: US (occurrence: US)
  Receive Date: 20131024
  Receipt Date: 20131024
  Transmission Date: 20140711
  Serious: Yes (Hospitalization, Other)
  Sender: FDA-Public Use
  Company Number: US-PFIZER INC-2013303550

PATIENT
  Age: 66 Year
  Sex: Female

DRUGS (7)
  1. RAPAMUNE [Suspect]
     Indication: PROPHYLAXIS AGAINST TRANSPLANT REJECTION
     Dosage: 3 MG (TWO TABLETS EACH OF 1MG IN MORNING AND ONE TABLET OF 1MG AT NIGHT), UNK
     Route: 048
     Dates: start: 201307, end: 201308
  2. RAPAMUNE [Suspect]
     Dosage: 3 MG (TWO TABLETS EACH OF 1MG IN MORNING AND ONE TABLET OF 1MG AT NIGHT), UNK
     Route: 048
     Dates: start: 201309
  3. MYFORTIC [Concomitant]
     Dosage: 1440 MG (FOUR TABLETS EACH OF 360MG), 1X/DAY
  4. PREDNISONE [Concomitant]
     Dosage: 5 MG, 1X/DAY
  5. PRAVASTATIN [Concomitant]
     Dosage: 20 MG, 1X/DAY
  6. LOMOTIL [Concomitant]
     Indication: DIARRHOEA
     Dosage: UNK
  7. DOXAZOSIN [Concomitant]
     Dosage: 2 MG, 1X/DAY

REACTIONS (4)
  - Cyst [Recovered/Resolved]
  - Abdominal abscess [Recovered/Resolved]
  - Abscess [Recovered/Resolved]
  - Weight decreased [Unknown]
